FAERS Safety Report 6409812-6 (Version None)
Quarter: 2009Q4

REPORT INFORMATION
  Report Type: 
  Country: None (occurrence: None)
  Receive Date: 20091021
  Receipt Date: 20091021
  Transmission Date: 20100525
  Serious: Yes (Hospitalization)
  Sender: FDA-Public Use
  Company Number: None

PATIENT
  Sex: Female
  Weight: 68.9467 kg

DRUGS (13)
  1. RITUXAN [Suspect]
     Indication: B-CELL LYMPHOMA
     Dosage: 375 MG/M2 Q2 WEEKS INTRAVENOUS
     Route: 042
     Dates: start: 20090806
  2. CYCLOPHOSPHAMIDE [Suspect]
     Indication: B-CELL LYMPHOMA
     Dosage: 750 MG/M2 Q2WEEKS INTRAVENOUS
     Route: 042
     Dates: start: 20090806
  3. DOXORUBICIN HCL [Suspect]
     Indication: B-CELL LYMPHOMA
     Dosage: 50 MG/M2 Q2 WEEKS INTRAVENOUS
     Route: 042
     Dates: start: 20090806
  4. VINCRISTINE [Suspect]
     Indication: B-CELL LYMPHOMA
     Dosage: 2 MG MAX Q2 WEEKS INTRAVENOUS
     Route: 042
     Dates: start: 20090806
  5. PREDNISONE TAB [Suspect]
     Indication: B-CELL LYMPHOMA
     Dosage: 100 MG DAYS 1 - 5 ORAL
     Route: 048
     Dates: start: 20090806, end: 20090810
  6. NEULASTA [Suspect]
     Indication: B-CELL LYMPHOMA
     Dosage: 6 MG DAY 2
     Dates: start: 20090806
  7. ALBUTEROL [Concomitant]
  8. CITALOPRAM HYDROBROMIDE [Concomitant]
  9. COLACE [Concomitant]
  10. COMPAZINE [Concomitant]
  11. FLUTICASONE [Concomitant]
  12. LORAZEPAM [Concomitant]
  13. PRILOSEC [Concomitant]

REACTIONS (4)
  - DYSPNOEA [None]
  - FEBRILE NEUTROPENIA [None]
  - NEUTROPENIA [None]
  - OROPHARYNGEAL CANDIDIASIS [None]
